FAERS Safety Report 23345717 (Version 1)
Quarter: 2023Q4

REPORT INFORMATION
  Report Type: Spontaneous
  Country: FR (occurrence: FR)
  Receive Date: 20231228
  Receipt Date: 20231228
  Transmission Date: 20240109
  Serious: Yes (Hospitalization, Other)
  Sender: FDA-Public Use
  Company Number: FR-AMGEN-FRASP2023230153

PATIENT
  Age: 69 Year
  Sex: Female

DRUGS (11)
  1. BEVACIZUMAB [Suspect]
     Active Substance: BEVACIZUMAB
     Indication: Non-small cell lung cancer
     Dosage: 1000 MILLIGRAM, MOST RECENT DATE OF ADMINISTRATION IS 13/APR/2021
     Route: 042
     Dates: start: 20210323
  2. BEVACIZUMAB [Suspect]
     Active Substance: BEVACIZUMAB
     Dosage: 950 MILLIGRAM, 16 CYCLES-TOTAL DOSE: 14875 MG
     Route: 042
     Dates: start: 20220511
  3. BEVACIZUMAB [Suspect]
     Active Substance: BEVACIZUMAB
     Dosage: 975 MILLIGRAM
     Route: 042
     Dates: start: 20210413, end: 20210413
  4. BEVACIZUMAB [Suspect]
     Active Substance: BEVACIZUMAB
     Dosage: 950 MILLIGRAM, 16 CYCLES-TOTAL DOSE: 14875 MG
     Route: 042
     Dates: start: 20210511, end: 20210511
  5. ATEZOLIZUMAB [Suspect]
     Active Substance: ATEZOLIZUMAB
     Indication: Non-small cell lung cancer
     Dosage: 1200 MILLIGRAM, 19 CYCLES- TOTAL DOSE: 22800 MGMOST RECENT DATE OF ADMINISTRATION IS 13/APR/2021
     Route: 042
     Dates: start: 20210323, end: 20220511
  6. ATEZOLIZUMAB [Suspect]
     Active Substance: ATEZOLIZUMAB
     Dosage: 1200 MILLIGRAM, 4 CYCLES- TOTAL DOSE: 4800 MGMOST RECENT DATE OF ADMINISTRATION IS 13/APR/2021
     Route: 042
     Dates: start: 20210323, end: 20210601
  7. CISPLATIN [Concomitant]
     Active Substance: CISPLATIN
     Indication: Non-small cell lung cancer
     Dosage: 125 MILLIGRAM, DAY 1 OF CYCLE OF 21 DAYSMOST RECENT DATE OF ADMINISTRATION IS 13/APR/2021
     Dates: start: 20210323
  8. CISPLATIN [Concomitant]
     Active Substance: CISPLATIN
     Dosage: 122 MILLIGRAM, EVERY 1 CYCLE(S) DAY 1 OF CYCLE OF 21 DAYS4 CYCLES- TOTAL DOSE: 494 MG
     Dates: start: 20210601
  9. CISPLATIN [Concomitant]
     Active Substance: CISPLATIN
     Dosage: UNK, EVERY 1 CYCLE(S) DAY 1 OF CYCLE OF 21 DAYS
     Dates: start: 20210413, end: 20210511
  10. PEMETREXED [Concomitant]
     Active Substance: PEMETREXED
     Indication: Non-small cell lung cancer
     Dosage: 600 MILLIGRAM, DAY 1 OF CYCLE OF 21 DAYSMOST RECENT DATE OF ADMINISTRATION IS 13/APR/2021. CYCLES- T
     Dates: end: 20210727
  11. PEMETREXED [Concomitant]
     Active Substance: PEMETREXED
     Dosage: 825 MILLIGRAM, DAY 1 OF CYCLE OF 21 DAYSMOST RECENT DATE OF ADMINISTRATION IS 13/APR/2021
     Dates: start: 20210323

REACTIONS (3)
  - Ischaemic stroke [Not Recovered/Not Resolved]
  - Hypertension [Recovered/Resolved]
  - Infusion related reaction [Recovered/Resolved]

NARRATIVE: CASE EVENT DATE: 20210511
